FAERS Safety Report 5735044-0 (Version None)
Quarter: 2008Q2

REPORT INFORMATION
  Report Type: 
  Country: None (occurrence: None)
  Receive Date: 20080512
  Receipt Date: 20080430
  Transmission Date: 20081010
  Serious: No
  Sender: FDA-Public Use
  Company Number: CH-ROCHE-562534

PATIENT
  Age: 14 Year
  Sex: Female

DRUGS (1)
  1. ROACCUTAN [Suspect]
     Indication: ACNE
     Route: 048
     Dates: start: 20071001, end: 20071201

REACTIONS (2)
  - NO ADVERSE EVENT [None]
  - PREGNANCY [None]
